FAERS Safety Report 16929509 (Version 1)
Quarter: 2019Q4

REPORT INFORMATION
  Report Type: Report from Study
  Country: US (occurrence: US)
  Receive Date: 20191017
  Receipt Date: 20191017
  Transmission Date: 20200122
  Serious: Yes (Death)
  Sender: FDA-Public Use
  Company Number: US-ROCHE-2445687

PATIENT
  Age: 59 Year
  Sex: Female

DRUGS (4)
  1. TECENTRIQ [Suspect]
     Active Substance: ATEZOLIZUMAB
     Indication: BRONCHIAL CARCINOMA
     Route: 042
  2. TECENTRIQ [Suspect]
     Active Substance: ATEZOLIZUMAB
     Indication: ANAEMIA
  3. TECENTRIQ [Suspect]
     Active Substance: ATEZOLIZUMAB
     Indication: BONE CANCER
  4. TECENTRIQ [Suspect]
     Active Substance: ATEZOLIZUMAB
     Indication: HYPOKALAEMIA

REACTIONS (1)
  - Death [Fatal]

NARRATIVE: CASE EVENT DATE: 20191012
